FAERS Safety Report 11797594 (Version 1)
Quarter: 2015Q4

REPORT INFORMATION
  Report Type: Spontaneous
  Country: SE (occurrence: SE)
  Receive Date: 20151203
  Receipt Date: 20151203
  Transmission Date: 20160305
  Serious: Yes (Other)
  Sender: FDA-Public Use
  Company Number: SE-ROCHE-1669200

PATIENT
  Sex: Female

DRUGS (1)
  1. KADCYLA [Suspect]
     Active Substance: ADO-TRASTUZUMAB EMTANSINE
     Indication: BREAST CANCER
     Route: 065

REACTIONS (6)
  - Lacrimation increased [Recovered/Resolved]
  - Visual impairment [Unknown]
  - Ocular hyperaemia [Unknown]
  - Vision blurred [Unknown]
  - Dry eye [Unknown]
  - Herpes virus infection [Unknown]

NARRATIVE: CASE EVENT DATE: 201509
